FAERS Safety Report 15153432 (Version 1)
Quarter: 2018Q3

REPORT INFORMATION
  Report Type: Spontaneous
  Country: US (occurrence: US)
  Receive Date: 20180717
  Receipt Date: 20180717
  Transmission Date: 20181010
  Serious: Yes (Other)
  Sender: FDA-Public Use
  Company Number: US-ROCHE-2153527

PATIENT
  Sex: Female
  Weight: 58.57 kg

DRUGS (5)
  1. XELODA [Suspect]
     Active Substance: CAPECITABINE
     Indication: COLON CANCER
     Route: 065
     Dates: start: 201710, end: 201712
  2. XELODA [Suspect]
     Active Substance: CAPECITABINE
     Dosage: 3 IN MORNING, 2 IN EVENING, 14 DAYS ON, 7 DAYS OFF
     Route: 065
     Dates: start: 201802, end: 20180620
  3. AVASTIN [Suspect]
     Active Substance: BEVACIZUMAB
     Indication: COLON CANCER
     Route: 065
     Dates: start: 201710, end: 201712
  4. AVASTIN [Suspect]
     Active Substance: BEVACIZUMAB
     Route: 065
     Dates: start: 201802
  5. XELODA [Suspect]
     Active Substance: CAPECITABINE
     Dosage: 3 IN MORNING, 2 IN EVENING,10 DAYS ON, 11 DAYS OFFONGOING: YES
     Route: 065
     Dates: start: 20180621

REACTIONS (3)
  - Ulcer haemorrhage [Not Recovered/Not Resolved]
  - Pain [Not Recovered/Not Resolved]
  - Skin ulcer [Not Recovered/Not Resolved]
